FAERS Safety Report 6376535-1 (Version None)
Quarter: 2009Q3

REPORT INFORMATION
  Report Type: 
  Country: None (occurrence: None)
  Receive Date: 20090925
  Receipt Date: 20090914
  Transmission Date: 20100115
  Serious: Yes (Disabling)
  Sender: FDA-Public Use
  Company Number: CH-PFIZER INC-2009263135

PATIENT
  Age: 69 Year

DRUGS (3)
  1. CELEBREX [Suspect]
     Indication: OSTEOARTHRITIS
     Dosage: 200 MG, 1X/DAY
     Route: 048
     Dates: start: 20060701, end: 20090427
  2. BISOPROLOL FUMARATE [Concomitant]
     Dosage: 10 MG, 1X/DAY
     Route: 048
     Dates: start: 20040301
  3. ELTROXIN [Concomitant]
     Dosage: 0.1 MG, 1X/DAY
     Route: 048
     Dates: start: 19570101

REACTIONS (1)
  - VITREOUS HAEMORRHAGE [None]
